FAERS Safety Report 9924016 (Version 1)
Quarter: 2014Q1

REPORT INFORMATION
  Report Type: Spontaneous
  Country: BW (occurrence: BW)
  Receive Date: 20140225
  Receipt Date: 20140225
  Transmission Date: 20141002
  Serious: Yes (Hospitalization)
  Sender: FDA-Public Use
  Company Number: BW-B.I. PHARMACEUTICALS,INC./RIDGEFIELD-2014-BI-07675GD

PATIENT
  Age: 17 Year
  Sex: Female

DRUGS (4)
  1. NEVIRAPINE [Suspect]
     Indication: HIV INFECTION
     Route: 065
  2. ZIDOVUDINE [Suspect]
     Indication: HIV INFECTION
     Route: 065
  3. LAMIVUDINE [Suspect]
     Indication: HIV INFECTION
     Route: 065
  4. DEPO-PROVERA [Suspect]
     Indication: CONTRACEPTION
     Route: 065

REACTIONS (5)
  - Intracranial venous sinus thrombosis [Unknown]
  - Partial seizures [Unknown]
  - Headache [Unknown]
  - Photophobia [Unknown]
  - Eye pain [Unknown]
